FAERS Safety Report 9497072 (Version 3)
Quarter: 2013Q4

REPORT INFORMATION
  Report Type: Spontaneous
  Country: DE (occurrence: None)
  Receive Date: 20130830
  Receipt Date: 20131029
  Transmission Date: 20140711
  Serious: Yes (Hospitalization)
  Sender: FDA-Public Use
  Company Number: SYM-2013-10002

PATIENT
  Age: 76 Year
  Sex: Male

DRUGS (18)
  1. 5 FU (FLUOROURACIL) [Suspect]
     Indication: COLORECTAL CANCER METASTATIC
     Route: 040
     Dates: start: 20130603, end: 20130603
  2. IRINOTECAN (IRINOTECAN) (SOLUTION FOR INFUSION) (IRINOTECAN) [Suspect]
     Indication: COLORECTAL CANCER METASTATIC
     Dosage: 340 MG, EVERY OTHER WEEK, INTRAVENOUS (NOT OTHERWISE SPECIFIED)
     Route: 042
     Dates: start: 20130603, end: 20130603
  3. LEUCOVORIN [Suspect]
     Indication: COLORECTAL CANCER METASTATIC
     Dosage: 740 MG, EVERY OTHER WEEK, INTRAVENOUS (NOT OTHERWISE SPECIFIED)
     Route: 042
     Dates: start: 20130603, end: 20130603
  4. AFLIBERCEPT (AFLIBERCEPT) (SOLUTION FOR INFUSION) (AFLIBERCEPT) [Suspect]
     Indication: COLORECTAL CANCER METASTATIC
     Dosage: 288 MG, EVERY OTHER WEEK, INTRAVENOUS (NOT OTHERWISE SPECIFIED)
     Route: 042
     Dates: start: 20130603, end: 20130603
  5. CORTICOSTEROIDS (CORTICOSTEROIDS) [Concomitant]
  6. SEROTONIN ANTAGONISTS (SEROTONIN ANTAGONISTS) [Concomitant]
  7. ANTISEPTICS (ANTISEPTICS) [Concomitant]
  8. ANTICHOLINERGICS (ANTICHOLINERGICS [Concomitant]
  9. ACE INHIBITOR NOS (ACE INHIBITORS) [Concomitant]
  10. BETA BLOCKING AGENTS (BETA BLOCKING AGENTS) [Concomitant]
  11. PLATELET AGGREGATION INHIBITOR (PLATELET AGGREGATION INHIBITORS EXCL. HEPARIN) [Concomitant]
  12. DIURETICS (DIURETICS) [Concomitant]
  13. HYPNOTICS AND SEDATIVES (HYPOTICS AND SEDATIVES) [Concomitant]
  14. G-CSF (GRANULOCYTE COLONY STIMULATING FACTOR) (GRANULOCYTE COLONY STIMULATING FACTOR) [Concomitant]
  15. BENZODIAZEPINE DERIVATIVES (BENZODIAZEPINE DERUVATIVES) [Concomitant]
  16. METOCLOPRAMIDE (METOCLOPRAMIDE) (METOCLOPRAMIDE) [Concomitant]
  17. METAMIZOLE (METAMIZOLE) (METAMIZOLE) [Concomitant]
  18. PROTON PUMP INHIBITORS (PROTON PUMP INHIBITORS) [Concomitant]

REACTIONS (4)
  - Respiratory tract infection [None]
  - Oropharyngeal pain [None]
  - Dysphagia [None]
  - Weight decreased [None]
